FAERS Safety Report 5872104-8 (Version None)
Quarter: 2008Q3

REPORT INFORMATION
  Report Type: 
  Country: None (occurrence: None)
  Receive Date: 20080905
  Receipt Date: 20080903
  Transmission Date: 20090109
  Serious: Yes (Hospitalization)
  Sender: FDA-Public Use
  Company Number: B0534153A

PATIENT
  Age: 63 Year
  Sex: Male

DRUGS (16)
  1. AUGMENTIN '125' [Suspect]
     Indication: PNEUMONIA
     Dosage: 1G PER DAY
     Route: 048
     Dates: start: 20080606, end: 20080623
  2. RYTHMOL [Suspect]
     Indication: VENTRICULAR ARRHYTHMIA
     Dosage: 30MG SIX TIMES PER DAY
     Route: 048
     Dates: end: 20080704
  3. AMOXICILLIN [Concomitant]
     Indication: ANTIBIOTIC THERAPY
     Dosage: 2G PER DAY
     Route: 065
     Dates: start: 20080521, end: 20080528
  4. VANCOMYCIN HCL [Concomitant]
     Indication: ANTIBIOTIC THERAPY
     Route: 065
     Dates: start: 20080101, end: 20080101
  5. CLAFORAN [Concomitant]
     Indication: ANTIBIOTIC THERAPY
     Route: 065
     Dates: start: 20080501, end: 20080601
  6. FLAGYL [Concomitant]
     Indication: ANTI-INFECTIVE THERAPY
     Route: 065
     Dates: start: 20080501, end: 20080601
  7. NEURONTIN [Concomitant]
     Indication: DRUG USE FOR UNKNOWN INDICATION
     Dosage: 300MG TWICE PER DAY
     Route: 065
     Dates: end: 20080704
  8. TAHOR [Concomitant]
     Indication: DRUG USE FOR UNKNOWN INDICATION
     Dosage: 40MG PER DAY
     Route: 065
     Dates: end: 20080704
  9. INIPOMP [Concomitant]
     Indication: DRUG USE FOR UNKNOWN INDICATION
     Dosage: 20MG AT NIGHT
     Route: 065
     Dates: end: 20080704
  10. BRICANYL [Concomitant]
     Indication: DRUG USE FOR UNKNOWN INDICATION
     Route: 055
  11. COUMADIN [Concomitant]
     Indication: DRUG USE FOR UNKNOWN INDICATION
     Dosage: 1MG AT NIGHT
  12. LEVOTHYROX [Concomitant]
     Indication: DRUG USE FOR UNKNOWN INDICATION
     Dosage: 25MCG IN THE MORNING
     Route: 065
  13. IMOVANE [Concomitant]
     Indication: DRUG USE FOR UNKNOWN INDICATION
     Route: 065
  14. OMIX LP 0,4 MG [Concomitant]
     Indication: DRUG USE FOR UNKNOWN INDICATION
     Dosage: .4MG AT NIGHT
     Route: 048
  15. DUPHALAC [Concomitant]
     Indication: DRUG USE FOR UNKNOWN INDICATION
     Route: 065
  16. PROPOXYPHENE HCL AND ACETAMINOPHEN [Concomitant]
     Indication: DRUG USE FOR UNKNOWN INDICATION
     Dosage: 2CAP THREE TIMES PER DAY

REACTIONS (4)
  - BILIARY CYST [None]
  - HEPATITIS CHOLESTATIC [None]
  - HEPATOCELLULAR INJURY [None]
  - SPHINCTER OF ODDI DYSFUNCTION [None]
